FAERS Safety Report 7639548-5 (Version None)
Quarter: 2011Q3

REPORT INFORMATION
  Report Type: 
  Country: None (occurrence: None)
  Receive Date: 20110727
  Receipt Date: 20110718
  Transmission Date: 20111222
  Serious: Yes (Other)
  Sender: FDA-Public Use
  Company Number: TH-GLAXOSMITHKLINE-B0734810B

PATIENT

DRUGS (7)
  1. FLECAINIDE ACETATE [Suspect]
     Indication: ATRIAL FLUTTER
     Route: 015
  2. SOTALOL HCL [Suspect]
     Indication: ATRIAL FLUTTER
     Dosage: 160MG PER DAY
     Route: 064
  3. DIGOXIN [Suspect]
     Indication: ATRIAL FLUTTER
     Route: 015
  4. ADENOSINE [Concomitant]
     Route: 042
  5. AMIODARONE HCL [Concomitant]
     Route: 048
  6. FLECAINIDE ACETATE [Concomitant]
     Route: 048
  7. DIGOXIN [Concomitant]
     Route: 048

REACTIONS (4)
  - ASCITES [None]
  - EJECTION FRACTION DECREASED [None]
  - MATERNAL EXPOSURE DURING PREGNANCY [None]
  - GENERALISED OEDEMA [None]
